FAERS Safety Report 10402025 (Version 3)
Quarter: 2014Q3

REPORT INFORMATION
  Report Type: Spontaneous
  Country: US (occurrence: US)
  Receive Date: 20140822
  Receipt Date: 20140829
  Transmission Date: 20150326
  Serious: Yes (Other)
  Sender: FDA-Public Use
  Company Number: US-PFIZER INC-2014230615

PATIENT
  Age: 16 Year
  Sex: Male

DRUGS (3)
  1. ERYTHROMYCIN. [Interacting]
     Active Substance: ERYTHROMYCIN
     Indication: ACNE
     Dosage: 999 MG, 1X/DAY
  2. METHYLPHENIDATE HYDROCHLORIDE. [Suspect]
     Active Substance: METHYLPHENIDATE HYDROCHLORIDE
     Indication: ATTENTION DEFICIT/HYPERACTIVITY DISORDER
     Dosage: 30 MG, 2X/DAY
  3. BUPROPION SR [Interacting]
     Active Substance: BUPROPION
     Indication: DEPRESSION
     Dosage: 100 MG, 2X/DAY

REACTIONS (2)
  - Drug interaction [Recovered/Resolved]
  - Acute myocardial infarction [Recovered/Resolved]
